FAERS Safety Report 13274873 (Version 2)
Quarter: 2019Q2

REPORT INFORMATION
  Report Type: Spontaneous
  Country: US (occurrence: US)
  Receive Date: 20170227
  Receipt Date: 20190411
  Transmission Date: 20190711
  Serious: Yes (Hospitalization)
  Sender: FDA-Public Use
  Company Number: US-VIFOR (INTERNATIONAL) INC.-VIT-2017-01738

PATIENT
  Age: 76 Year
  Sex: Female

DRUGS (12)
  1. RENVELA [Concomitant]
     Active Substance: SEVELAMER CARBONATE
  2. LACTULOSE. [Concomitant]
     Active Substance: LACTULOSE
  3. ASPIRIN. [Concomitant]
     Active Substance: ASPIRIN
  4. OXYCODONE HYDROCHLORIDE. [Concomitant]
     Active Substance: OXYCODONE HYDROCHLORIDE
  5. VELTASSA [Suspect]
     Active Substance: PATIROMER
     Indication: HYPERKALAEMIA
     Route: 048
  6. ONDANSETRON HCL [Concomitant]
     Active Substance: ONDANSETRON HYDROCHLORIDE
  7. OXYCONTIN [Concomitant]
     Active Substance: OXYCODONE HYDROCHLORIDE
  8. WARFARIN SODIUM. [Concomitant]
     Active Substance: WARFARIN SODIUM
  9. GABAPENTIN. [Concomitant]
     Active Substance: GABAPENTIN
  10. KLONOPIN [Concomitant]
     Active Substance: CLONAZEPAM
  11. METHOCARBAMOL. [Concomitant]
     Active Substance: METHOCARBAMOL
  12. PANTOPRAZOLE SODIUM. [Concomitant]
     Active Substance: PANTOPRAZOLE SODIUM

REACTIONS (3)
  - Clostridium difficile infection [Unknown]
  - Cystitis [Unknown]
  - Medical device site haemorrhage [Unknown]

NARRATIVE: CASE EVENT DATE: 20190324
